FAERS Safety Report 14700316 (Version 1)
Quarter: 2018Q1

REPORT INFORMATION
  Report Type: Spontaneous
  Country: NL (occurrence: NL)
  Receive Date: 20180330
  Receipt Date: 20180330
  Transmission Date: 20180509
  Serious: Yes (Hospitalization)
  Sender: FDA-Public Use
  Company Number: NL-JNJFOC-20180332129

PATIENT
  Sex: Male
  Weight: 105 kg

DRUGS (5)
  1. HALDOL [Suspect]
     Active Substance: HALOPERIDOL
     Indication: MANIA
     Route: 048
     Dates: start: 20100517
  2. DEPAKINE [Interacting]
     Active Substance: VALPROATE SODIUM
     Indication: MOOD SWINGS
     Route: 065
  3. LORAZEPAM. [Interacting]
     Active Substance: LORAZEPAM
     Indication: PRODUCT USED FOR UNKNOWN INDICATION
     Route: 065
     Dates: start: 20100517
  4. DEPAKINE [Interacting]
     Active Substance: VALPROATE SODIUM
     Indication: MOOD SWINGS
     Route: 065
     Dates: start: 20100527
  5. ZYPREXA [Interacting]
     Active Substance: OLANZAPINE
     Indication: MANIA
     Route: 065
     Dates: start: 20100627

REACTIONS (4)
  - Drug interaction [Unknown]
  - Blood cholesterol increased [Recovering/Resolving]
  - Hospitalisation [Unknown]
  - Weight increased [Recovering/Resolving]
